FAERS Safety Report 23355005 (Version 1)
Quarter: 2024Q1

REPORT INFORMATION
  Report Type: Report from Study
  Country: JP (occurrence: JP)
  Receive Date: 20240101
  Receipt Date: 20240101
  Transmission Date: 20240410
  Serious: Yes (Hospitalization)
  Sender: FDA-Public Use
  Company Number: JP-JNJFOC-A-CH2019-196345

PATIENT
  Age: 28 Year
  Sex: Male

DRUGS (19)
  1. TRACLEER [Suspect]
     Active Substance: BOSENTAN
     Indication: Scleroderma associated digital ulcer
     Dosage: 62.5 MG, BID
     Route: 048
     Dates: start: 20170309
  2. TRACLEER [Suspect]
     Active Substance: BOSENTAN
     Indication: Skin ulcer
  3. RHEUMATREX [Suspect]
     Active Substance: METHOTREXATE SODIUM
     Indication: Systemic scleroderma
     Dosage: 10 MG, Q1WEEK
     Route: 048
     Dates: start: 20170309, end: 20170406
  4. RHEUMATREX [Suspect]
     Active Substance: METHOTREXATE SODIUM
     Dosage: 8 MG, Q1WEEK
     Route: 048
     Dates: start: 20170407, end: 20170608
  5. RHEUMATREX [Suspect]
     Active Substance: METHOTREXATE SODIUM
     Dosage: 6 MG, Q1WEEK
     Route: 048
     Dates: start: 20170609, end: 20180607
  6. SARPOGRELATE HYDROCHLORIDE [Concomitant]
     Active Substance: SARPOGRELATE HYDROCHLORIDE
     Indication: Systemic scleroderma
     Route: 048
     Dates: start: 20170309, end: 20180607
  7. BERAPROST SODIUM [Concomitant]
     Active Substance: BERAPROST SODIUM
     Indication: Systemic scleroderma
     Route: 048
     Dates: start: 20170309, end: 20180607
  8. TRANILAST [Concomitant]
     Active Substance: TRANILAST
     Indication: Systemic scleroderma
     Route: 048
     Dates: start: 20170309, end: 20180607
  9. FOLIC ACID [Concomitant]
     Active Substance: FOLIC ACID
     Indication: Prophylaxis
     Route: 048
     Dates: start: 20170309, end: 20180607
  10. LANSOPRAZOLE [Concomitant]
     Active Substance: LANSOPRAZOLE
     Indication: Gastrooesophageal reflux disease
     Route: 048
     Dates: start: 20170309
  11. GLYCOSAMINOGLYCANS [Concomitant]
     Active Substance: GLYCOSAMINOGLYCANS
     Indication: Systemic scleroderma
     Dosage: Q.S
     Route: 061
     Dates: start: 20170309
  12. ETODOLAC [Concomitant]
     Active Substance: ETODOLAC
     Indication: Systemic scleroderma
     Route: 048
     Dates: start: 20170309
  13. ETODOLAC [Concomitant]
     Active Substance: ETODOLAC
     Indication: Arthropathy
  14. GASLON [Concomitant]
     Active Substance: IRSOGLADINE MALEATE
     Indication: Gastric mucosal lesion
     Route: 048
     Dates: start: 20170309
  15. LOXOPROFEN [Concomitant]
     Active Substance: LOXOPROFEN
     Indication: Systemic scleroderma
     Dosage: P.R.N
     Route: 048
     Dates: start: 20170309
  16. ATORVASTATIN [Concomitant]
     Active Substance: ATORVASTATIN
     Indication: Prophylaxis
     Route: 048
     Dates: start: 20180622
  17. SULFAMETHOXAZOLE\TRIMETHOPRIM [Concomitant]
     Active Substance: SULFAMETHOXAZOLE\TRIMETHOPRIM
     Indication: Prophylaxis
     Route: 048
     Dates: start: 20180626
  18. ELDECALCITOL [Concomitant]
     Active Substance: ELDECALCITOL
     Indication: Osteoporosis prophylaxis
     Route: 048
     Dates: start: 20180821
  19. MINODRONIC ACID [Concomitant]
     Active Substance: MINODRONIC ACID
     Indication: Osteoporosis prophylaxis
     Route: 048
     Dates: start: 20180830

REACTIONS (3)
  - Hodgkin^s disease [Recovering/Resolving]
  - Nephrotic syndrome [Recovering/Resolving]
  - Lymphadenopathy [Recovering/Resolving]

NARRATIVE: CASE EVENT DATE: 20180607
